FAERS Safety Report 10065152 (Version 2)
Quarter: 2014Q2

REPORT INFORMATION
  Report Type: Spontaneous
  Country: GB (occurrence: GB)
  Receive Date: 20140408
  Receipt Date: 20140627
  Transmission Date: 20141212
  Serious: Yes (Hospitalization)
  Sender: FDA-Public Use
  Company Number: PHHY2014GB038183

PATIENT
  Age: 74 Year
  Sex: Male

DRUGS (9)
  1. PIPERACILLIN+TAZOBACTAM [Suspect]
     Route: 055
     Dates: start: 20140311, end: 20140314
  2. METHOTREXATE [Interacting]
     Dosage: 20MG/0.4ML
     Route: 058
  3. CLEXANE [Concomitant]
     Indication: THROMBOSIS PROPHYLAXIS
     Dosage: 40 MG
     Route: 058
     Dates: start: 20140311
  4. MIRTAZAPINE [Concomitant]
     Indication: DEPRESSION
     Dosage: 15 MG, UNK
     Route: 048
  5. LANSOPRAZOLE [Concomitant]
     Indication: PROPHYLAXIS
     Dosage: 30 MG, UNK
     Route: 048
  6. PREDNISOLONE [Concomitant]
     Dosage: 7.5 MG, UNK
     Route: 050
  7. FOLIC ACID [Concomitant]
     Dosage: 10 MG, UNK
     Route: 050
  8. ALENDRONIC ACID [Concomitant]
     Indication: PROPHYLAXIS
     Dosage: 70 MG, UNK
     Route: 048
  9. HYDROXYCHLOROQUINE SULFATE [Concomitant]
     Dosage: 400 MG, UNK
     Route: 048

REACTIONS (2)
  - Burning mouth syndrome [Recovering/Resolving]
  - Drug interaction [Recovering/Resolving]
